FAERS Safety Report 7809242-6 (Version None)
Quarter: 2011Q4

REPORT INFORMATION
  Report Type: 
  Country: None (occurrence: None)
  Receive Date: 20111006
  Receipt Date: 20110921
  Transmission Date: 20120403
  Serious: Yes (Hospitalization)
  Sender: FDA-Public Use
  Company Number: 2011080049

PATIENT
  Age: 84 Year
  Sex: Male

DRUGS (4)
  1. WARFARIN (WARFARIN POTASSIUM) [Concomitant]
  2. TORSEMIDE [Suspect]
     Indication: OEDEMA DUE TO CARDIAC DISEASE
     Dosage: 4 MG (4 MG,1 IN 1 D) , ORAL
     Route: 048
     Dates: start: 20090630, end: 20091001
  3. VERAPAMIL HYDROCHLORIDE [Concomitant]
  4. DISOPYRAMIDE [Concomitant]

REACTIONS (13)
  - TOXIC SKIN ERUPTION [None]
  - VISUAL FIELD DEFECT [None]
  - RENAL IMPAIRMENT [None]
  - RASH [None]
  - SUPRAVENTRICULAR EXTRASYSTOLES [None]
  - DERMATITIS HERPETIFORMIS [None]
  - BLOOD IMMUNOGLOBULIN E INCREASED [None]
  - SICK SINUS SYNDROME [None]
  - BULLOUS IMPETIGO [None]
  - EMBOLIC STROKE [None]
  - ATRIAL FIBRILLATION [None]
  - BRADYCARDIA [None]
  - BLISTER [None]
